FAERS Safety Report 9333697 (Version 1)
Quarter: 2013Q2

REPORT INFORMATION
  Report Type: Spontaneous
  Country: US (occurrence: US)
  Receive Date: 20130606
  Receipt Date: 20130606
  Transmission Date: 20140414
  Serious: No
  Sender: FDA-Public Use
  Company Number: US-TEVA-408665USA

PATIENT
  Sex: Female

DRUGS (2)
  1. AMRIX [Suspect]
     Dosage: AS NEEDED
  2. VICODIN [Concomitant]

REACTIONS (1)
  - Abdominal discomfort [Unknown]
